FAERS Safety Report 9897547 (Version 3)
Quarter: 2014Q1

REPORT INFORMATION
  Report Type: Report from Study
  Country: JP (occurrence: JP)
  Receive Date: 20140214
  Receipt Date: 20140303
  Transmission Date: 20141002
  Serious: Yes (Hospitalization)
  Sender: FDA-Public Use
  Company Number: JP-JNJFOC-20140111995

PATIENT
  Age: 49 Year
  Sex: Female
  Weight: 66 kg

DRUGS (57)
  1. SAXIZON [Concomitant]
     Indication: INFECTION
     Dosage: 100-200MG PER DAY
     Route: 041
     Dates: start: 20140107, end: 20140109
  2. PENTCILLIN [Concomitant]
     Indication: INFECTION
     Route: 041
     Dates: start: 20140107, end: 20140109
  3. SOLDEM 3A [Concomitant]
     Route: 041
     Dates: start: 20140108, end: 20140109
  4. NEO VITACAIN [Concomitant]
     Route: 041
     Dates: start: 20140111, end: 20140111
  5. OMEPRAZOLE [Concomitant]
     Dosage: 20-??40MG PER DAY
     Route: 042
     Dates: start: 20140120, end: 20140123
  6. OPYSTAN [Concomitant]
     Indication: OESOPHAGOGASTRODUODENOSCOPY
     Route: 042
     Dates: start: 20140120, end: 20140120
  7. ACTONEL [Concomitant]
     Indication: PROPHYLAXIS
     Route: 048
     Dates: start: 20140124
  8. CALONAL [Concomitant]
     Indication: TAKAYASU^S ARTERITIS
     Route: 048
     Dates: start: 20140118, end: 20140121
  9. NOVOLIN R [Concomitant]
     Route: 058
     Dates: start: 20140121
  10. PARIET [Concomitant]
     Indication: GASTRITIS
     Route: 048
     Dates: start: 20140120, end: 20140130
  11. MUCOSTA [Concomitant]
     Indication: GASTRITIS
     Route: 048
     Dates: start: 20140120
  12. GOLIMUMAB [Suspect]
     Indication: COLITIS ULCERATIVE
     Route: 058
     Dates: start: 20130919, end: 20130919
  13. GOLIMUMAB [Suspect]
     Indication: COLITIS ULCERATIVE
     Route: 058
     Dates: start: 20131115, end: 20131115
  14. GOLIMUMAB [Suspect]
     Indication: COLITIS ULCERATIVE
     Route: 058
     Dates: start: 20131017, end: 20131017
  15. LOXOPROFEN [Concomitant]
     Dosage: 60-160MG?CPRN(AS NEEDED)
     Route: 048
     Dates: start: 20140104, end: 20140118
  16. MICARDIS [Concomitant]
     Indication: HYPERTENSION
     Route: 048
     Dates: start: 2008
  17. ADALAT [Concomitant]
     Indication: HYPERTENSION
     Route: 048
     Dates: start: 2008
  18. SIMVASTATIN [Concomitant]
     Indication: HYPERLIPIDAEMIA
     Route: 048
     Dates: start: 20081206
  19. BASEN [Concomitant]
     Indication: TYPE 2 DIABETES MELLITUS
     Route: 048
     Dates: start: 2008
  20. NOVOLIN N [Concomitant]
     Indication: TYPE 2 DIABETES MELLITUS
     Route: 058
     Dates: start: 2010, end: 20140118
  21. SG (APRONAL/CAFFEINE/PARACETAMOL/PROPYPHENAZONE) [Concomitant]
     Indication: HEADACHE
     Route: 048
     Dates: start: 20120119
  22. MIYA BM [Concomitant]
     Indication: COLITIS ULCERATIVE
     Route: 048
     Dates: start: 20120510
  23. PENTASA [Concomitant]
     Indication: COLITIS ULCERATIVE
     Route: 048
     Dates: start: 20130329
  24. SENNOSIDE [Concomitant]
     Indication: COLONOSCOPY
     Route: 048
     Dates: start: 20130605, end: 20130605
  25. NIFLEC [Concomitant]
     Indication: COLONOSCOPY
     Route: 048
     Dates: start: 20130606, end: 20130606
  26. BUSCOPAN [Concomitant]
     Indication: COLONOSCOPY
     Route: 030
     Dates: start: 20130606, end: 20130606
  27. XYLOCAINE [Concomitant]
     Indication: COLONOSCOPY
     Route: 061
     Dates: start: 20130606, end: 20130606
  28. CRESTOR [Concomitant]
     Route: 048
     Dates: start: 20130606, end: 20131225
  29. BUSCOPAN [Concomitant]
     Indication: SIGMOIDOSCOPY
     Route: 030
     Dates: start: 20130725, end: 20130725
  30. XYLOCAINE [Concomitant]
     Indication: SIGMOIDOSCOPY
     Route: 061
     Dates: start: 20130919, end: 20130919
  31. XYLOCAINE [Concomitant]
     Indication: SIGMOIDOSCOPY
     Route: 061
     Dates: start: 20131212, end: 20140116
  32. XYLOCAINE [Concomitant]
     Indication: SIGMOIDOSCOPY
     Route: 061
     Dates: start: 20130725, end: 20130725
  33. GLYCERINE [Concomitant]
     Indication: SIGMOIDOSCOPY
     Route: 054
     Dates: start: 20130725, end: 20130725
  34. THROMBIN [Concomitant]
     Indication: SIGMOIDOSCOPY
     Route: 061
     Dates: start: 20130725, end: 20130725
  35. LACTEC-G [Concomitant]
     Indication: TAKAYASU^S ARTERITIS
     Route: 041
     Dates: start: 20140107, end: 20140107
  36. LACTEC-G [Concomitant]
     Indication: TAKAYASU^S ARTERITIS
     Route: 041
     Dates: start: 20130920, end: 20130920
  37. NEOLAMIN 3B [Concomitant]
     Route: 042
     Dates: start: 20130920, end: 20130921
  38. GASTER [Concomitant]
     Route: 042
     Dates: start: 20130920, end: 20130921
  39. LACTEC-G [Concomitant]
     Route: 041
     Dates: start: 20130921, end: 20130921
  40. LANSOPRAZOLE [Concomitant]
     Route: 048
     Dates: start: 20130920, end: 20130926
  41. EPINASTINE HYDROCHLORIDE [Concomitant]
     Route: 048
  42. ANFLAVATE [Concomitant]
     Route: 061
     Dates: start: 20131010, end: 20131212
  43. INFLUENZA HA VACCINE [Concomitant]
     Route: 060
     Dates: start: 20131126, end: 20131126
  44. INDIGO CARMINE [Concomitant]
     Indication: SIGMOIDOSCOPY
     Route: 040
     Dates: start: 20131212, end: 20131212
  45. PREDONEMA [Concomitant]
     Indication: COLITIS ULCERATIVE
     Route: 054
     Dates: start: 20131212, end: 20140116
  46. PENTASA [Concomitant]
     Indication: COLITIS ULCERATIVE
     Route: 054
     Dates: start: 20131212, end: 20140116
  47. SIMVASTATIN [Concomitant]
     Route: 048
     Dates: start: 20131226
  48. SOFALCONE [Concomitant]
     Route: 048
     Dates: start: 20140104, end: 20140106
  49. SAWACILLIN [Concomitant]
     Indication: INFECTION
     Route: 048
     Dates: start: 20140105, end: 20140106
  50. CALONAL [Concomitant]
     Route: 048
     Dates: start: 20140106, end: 20140106
  51. PALANCON [Concomitant]
     Route: 048
     Dates: start: 20140107, end: 20140111
  52. URSO [Concomitant]
     Route: 048
     Dates: start: 20140107, end: 20140111
  53. BIOFERMIN [Concomitant]
     Indication: COLITIS ULCERATIVE
     Route: 048
     Dates: start: 20140107, end: 20140111
  54. LEVOFLOXACIN HYDRATE [Concomitant]
     Indication: INFECTION
     Route: 048
     Dates: start: 20140107, end: 20140111
  55. PHELLOBERIN [Concomitant]
     Indication: COLITIS ULCERATIVE
     Route: 048
     Dates: start: 20140107, end: 20140111
  56. SOLITA-T3 [Concomitant]
     Route: 048
     Dates: start: 20140107, end: 20140111
  57. NEOLAMIN 3B [Concomitant]
     Route: 041
     Dates: start: 20140107, end: 20140107

REACTIONS (1)
  - Takayasu^s arteritis [Not Recovered/Not Resolved]
